FAERS Safety Report 21342445 (Version 2)
Quarter: 2022Q3

REPORT INFORMATION
  Report Type: Report from Study
  Country: CA (occurrence: None)
  Receive Date: 20220916
  Receipt Date: 20220922
  Transmission Date: 20221027
  Serious: Yes (Hospitalization, Other)
  Sender: FDA-Public Use
  Company Number: 2022A236032

PATIENT
  Age: 59 Year
  Sex: Male

DRUGS (5)
  1. CALQUENCE [Suspect]
     Active Substance: ACALABRUTINIB
     Indication: Chronic lymphocytic leukaemia
     Route: 048
     Dates: start: 20211028, end: 20220716
  2. PERINDOPRIL [Concomitant]
     Active Substance: PERINDOPRIL
  3. XIGDUO XR [Concomitant]
     Active Substance: DAPAGLIFLOZIN PROPANEDIOL\METFORMIN HYDROCHLORIDE
  4. CYCLOPHOSPHAMIDE/RITUXIMAB/FLUDARABINE [Concomitant]
     Dates: start: 201206, end: 201307
  5. GAZYVA (CHLORAMBUCIL, OBINUTUZUMAB) [Concomitant]

REACTIONS (6)
  - Haematoma infection [Recovering/Resolving]
  - Diarrhoea [Unknown]
  - Pneumonia [Unknown]
  - Arthralgia [Unknown]
  - Wound infection [Unknown]
  - Skin lesion [Unknown]

NARRATIVE: CASE EVENT DATE: 20210101
